FAERS Safety Report 7438023-0 (Version None)
Quarter: 2011Q2

REPORT INFORMATION
  Report Type: 
  Country: None (occurrence: None)
  Receive Date: 20110426
  Receipt Date: 20110311
  Transmission Date: 20111010
  Serious: No
  Sender: FDA-Public Use
  Company Number: US-MYLANLABS-2011S1002825

PATIENT
  Age: 53 Year
  Sex: Female

DRUGS (2)
  1. NITROFURANTOIN MONOHYDRATE/MACROCRYSTALS [Suspect]
     Indication: URINARY TRACT INFECTION
     Route: 048
     Dates: start: 20110131, end: 20110203
  2. NITROFURANTOIN MONOHYDRATE/MACROCRYSTALS [Suspect]
     Indication: CYSTITIS
     Route: 048
     Dates: start: 20110131, end: 20110203

REACTIONS (6)
  - NAUSEA [None]
  - BLADDER PAIN [None]
  - DYSURIA [None]
  - MICTURITION URGENCY [None]
  - DRUG INEFFECTIVE [None]
  - ABDOMINAL PAIN UPPER [None]
